FAERS Safety Report 8974957 (Version 2)
Quarter: 2012Q4

REPORT INFORMATION
  Report Type: 
  Country: IT (occurrence: IT)
  Receive Date: 20121219
  Receipt Date: 20121221
  Transmission Date: 20130627
  Serious: Yes (Death, Other)
  Sender: FDA-Public Use
  Company Number: PHHY2012IT116787

PATIENT
  Sex: Female

DRUGS (2)
  1. ZOMETA [Suspect]
     Indication: BREAST CANCER STAGE IV
     Dosage: 4 mg, monthly
     Route: 042
     Dates: start: 20020101, end: 20040101
  2. ZOMETA [Suspect]
     Dosage: 4 mg, every 3 months
     Route: 042
     Dates: start: 20040101, end: 20080901

REACTIONS (2)
  - Death [Fatal]
  - Osteonecrosis of jaw [Unknown]
